FAERS Safety Report 4677430-6 (Version None)
Quarter: 2005Q2

REPORT INFORMATION
  Report Type: 
  Country: None (occurrence: None)
  Receive Date: 20050531
  Receipt Date: 20050412
  Transmission Date: 20051028
  Serious: No
  Sender: FDA-Public Use
  Company Number: US-BOEHRINGER INGELHEIM PHARMACEUTICALS, INC.-2005-BP-06004BP

PATIENT
  Age: 80 Year
  Sex: Male

DRUGS (11)
  1. MOBIC [Suspect]
     Indication: OSTEOARTHRITIS
     Route: 048
     Dates: start: 20050207, end: 20050210
  2. MOBIC [Suspect]
     Indication: NECK PAIN
  3. COUMADIN [Concomitant]
  4. LASIX [Concomitant]
  5. FOLIC ACID [Concomitant]
  6. COREG [Concomitant]
  7. DIOVAN [Concomitant]
  8. VITAMIN [Concomitant]
  9. FISH OIL [Concomitant]
  10. VITAMIN E [Concomitant]
  11. ONE A DAY [Concomitant]

REACTIONS (3)
  - ACTIVITIES OF DAILY LIVING IMPAIRED [None]
  - DIZZINESS [None]
  - FEELING ABNORMAL [None]
